FAERS Safety Report 6963911-9 (Version None)
Quarter: 2010Q3

REPORT INFORMATION
  Report Type: 
  Country: None (occurrence: None)
  Receive Date: 20100831
  Receipt Date: 20100817
  Transmission Date: 20110219
  Serious: Yes (Life-Threatening, Hospitalization, Other)
  Sender: FDA-Public Use
  Company Number: 1000007255

PATIENT
  Age: 61 Year
  Sex: Female
  Weight: 70 kg

DRUGS (9)
  1. CITALOPRAM (CITALOPRAM HYDROBROMIDE) [Suspect]
     Indication: DEPRESSION
     Dosage: 20 MG (20 MG, 1 IN 1 D), ORAL
     Route: 048
     Dates: end: 20090614
  2. MELPERONE [Concomitant]
  3. ACC LONG [Concomitant]
  4. SPIRIVA [Concomitant]
  5. SULTANOL [Concomitant]
  6. SYMBICORT [Concomitant]
  7. LEVOTHYROXINE SODIUM [Concomitant]
  8. THEOPHYLLINE [Concomitant]
  9. CALCIVIT D [Concomitant]

REACTIONS (9)
  - BRONCHOSPASM [None]
  - CHRONIC OBSTRUCTIVE PULMONARY DISEASE [None]
  - CONDITION AGGRAVATED [None]
  - CONFUSIONAL STATE [None]
  - LONG QT SYNDROME [None]
  - RESPIRATORY FAILURE [None]
  - RESTLESSNESS [None]
  - TORSADE DE POINTES [None]
  - UNEVALUABLE EVENT [None]
